FAERS Safety Report 5444093-1 (Version None)
Quarter: 2007Q3

REPORT INFORMATION
  Report Type: 
  Country: None (occurrence: None)
  Receive Date: 20070831
  Receipt Date: 20070827
  Transmission Date: 20080115
  Serious: Yes (Death, Hospitalization)
  Sender: FDA-Public Use
  Company Number: 2007SP017324

PATIENT
  Age: 58 Year
  Sex: Male

DRUGS (1)
  1. INTRON A [Suspect]
     Indication: RENAL CELL CARCINOMA STAGE UNSPECIFIED
     Dosage: IM

REACTIONS (6)
  - AUTOIMMUNE DISORDER [None]
  - BRONCHOPULMONARY ASPERGILLOSIS [None]
  - METABOLIC ACIDOSIS [None]
  - PLEURAL EFFUSION [None]
  - RESPIRATORY FAILURE [None]
  - TYPE 1 DIABETES MELLITUS [None]
